FAERS Safety Report 20576827 (Version 2)
Quarter: 2022Q1

REPORT INFORMATION
  Report Type: Spontaneous
  Country: TR (occurrence: TR)
  Receive Date: 20220310
  Receipt Date: 20220323
  Transmission Date: 20220423
  Serious: Yes (Life-Threatening, Hospitalization)
  Sender: FDA-Public Use
  Company Number: TR-TEVA-2022-TR-2014057

PATIENT
  Age: 61 Year
  Sex: Male

DRUGS (7)
  1. LEUCOVORIN [Suspect]
     Active Substance: LEUCOVORIN
     Indication: Colorectal cancer metastatic
     Dosage: FOLFOX REGIMEN
     Route: 065
  2. LEUCOVORIN [Suspect]
     Active Substance: LEUCOVORIN
     Dosage: FOLFIRI REGIMEN; RECEIVED SIX CYCLES
     Route: 065
     Dates: start: 202002
  3. FLUOROURACIL [Suspect]
     Active Substance: FLUOROURACIL
     Indication: Colorectal cancer metastatic
     Dosage: FOLFOX REGIMEN
     Route: 065
  4. FLUOROURACIL [Suspect]
     Active Substance: FLUOROURACIL
     Dosage: FOLFIRI REGIMEN; RECEIVED SIX CYCLES
     Route: 065
     Dates: start: 202002
  5. OXALIPLATIN [Suspect]
     Active Substance: OXALIPLATIN
     Indication: Colorectal cancer metastatic
     Dosage: FOLFOX REGIMEN
     Route: 065
  6. IRINOTECAN [Suspect]
     Active Substance: IRINOTECAN
     Indication: Colorectal cancer metastatic
     Dosage: FOLFIRI REGIMEN; RECEIVED SIX CYCLES
     Route: 065
     Dates: start: 202002
  7. PANITUMUMAB [Suspect]
     Active Substance: PANITUMUMAB
     Indication: Colorectal cancer metastatic
     Dosage: WITH FOLFIRI REGIMEN; RECEIVED SIX CYCLES
     Route: 065
     Dates: start: 202002

REACTIONS (2)
  - Interstitial lung disease [Recovering/Resolving]
  - Rash [Unknown]
